FAERS Safety Report 25386285 (Version 1)
Quarter: 2025Q2

REPORT INFORMATION
  Report Type: Spontaneous
  Country: US (occurrence: None)
  Receive Date: 20250602
  Receipt Date: 20250602
  Transmission Date: 20250717
  Serious: Yes (Other)
  Sender: FDA-CTU
  Company Number: None

PATIENT
  Age: 52 Year
  Sex: Female
  Weight: 63 kg

DRUGS (3)
  1. VEOZAH [Suspect]
     Active Substance: FEZOLINETANT
     Indication: Hot flush
     Dosage: FREQUENCY : DAILY;?
     Route: 048
     Dates: start: 20250219, end: 20250304
  2. KISQALI [Suspect]
     Active Substance: RIBOCICLIB SUCCINATE
  3. LETROZOLE [Suspect]
     Active Substance: LETROZOLE

REACTIONS (3)
  - Aspartate aminotransferase increased [None]
  - Alanine aminotransferase increased [None]
  - Blood bilirubin increased [None]

NARRATIVE: CASE EVENT DATE: 20250219
